FAERS Safety Report 17985043 (Version 1)
Quarter: 2020Q3

REPORT INFORMATION
  Report Type: Spontaneous
  Country: US (occurrence: US)
  Receive Date: 20200706
  Receipt Date: 20200706
  Transmission Date: 20201103
  Serious: Yes (Disabling, Other)
  Sender: FDA-Public Use
  Company Number: US-NAPPMUNDI-USA-2020-0155200

PATIENT

DRUGS (1)
  1. OXYCONTIN [Suspect]
     Active Substance: OXYCODONE HYDROCHLORIDE
     Indication: BACK PAIN
     Route: 048

REACTIONS (10)
  - Post-traumatic stress disorder [Unknown]
  - Anxiety [Unknown]
  - Illness [Unknown]
  - Impaired work ability [Unknown]
  - Depression [Unknown]
  - Drug dependence [Unknown]
  - Stress [Unknown]
  - Unevaluable event [Unknown]
  - Mental disorder [Unknown]
  - Social anxiety disorder [Unknown]
